FAERS Safety Report 15324770 (Version 1)
Quarter: 2018Q3

REPORT INFORMATION
  Report Type: Spontaneous
  Country: US (occurrence: US)
  Receive Date: 20180828
  Receipt Date: 20180828
  Transmission Date: 20181010
  Serious: Yes (Hospitalization)
  Sender: FDA-Public Use
  Company Number: US-BAUSCH-BL-2018-015343

PATIENT
  Age: 23 Year
  Sex: Male

DRUGS (1)
  1. BUPROPION HYDROCHLORIDE XL [Suspect]
     Active Substance: BUPROPION HYDROCHLORIDE
     Indication: DEPRESSION
     Route: 065

REACTIONS (11)
  - Persecutory delusion [Recovered/Resolved]
  - Agitation [Recovered/Resolved]
  - Binge drinking [Unknown]
  - Thought blocking [Recovered/Resolved]
  - Helplessness [Recovered/Resolved]
  - Psychotic disorder [Recovered/Resolved]
  - Self esteem decreased [Recovered/Resolved]
  - Irritability [Recovered/Resolved]
  - Anhedonia [Recovered/Resolved]
  - Abnormal behaviour [Recovered/Resolved]
  - Impulsive behaviour [Recovered/Resolved]
